FAERS Safety Report 23262242 (Version 3)
Quarter: 2024Q1

REPORT INFORMATION
  Report Type: Report from Study
  Country: FR (occurrence: FR)
  Receive Date: 20231205
  Receipt Date: 20240116
  Transmission Date: 20240410
  Serious: Yes (Other)
  Sender: FDA-Public Use
  Company Number: FR-ASTELLAS-2023US036172

PATIENT
  Age: 57 Year
  Sex: Male

DRUGS (19)
  1. ENFORTUMAB VEDOTIN [Suspect]
     Active Substance: ENFORTUMAB VEDOTIN
     Indication: Transitional cell carcinoma
     Dosage: 110 MG, CYCLIC (C1,D1)
     Route: 042
     Dates: start: 20230619
  2. ENFORTUMAB VEDOTIN [Suspect]
     Active Substance: ENFORTUMAB VEDOTIN
     Dosage: 110 MG, CYCLIC (C1,D8)
     Route: 042
     Dates: start: 20230626
  3. ENFORTUMAB VEDOTIN [Suspect]
     Active Substance: ENFORTUMAB VEDOTIN
     Dosage: 110 MG, CYCLIC (C1,D15)
     Route: 042
     Dates: start: 20230703
  4. ENFORTUMAB VEDOTIN [Suspect]
     Active Substance: ENFORTUMAB VEDOTIN
     Dosage: 110 MG, CYCLIC (C2,D1)
     Route: 042
     Dates: start: 20230717
  5. ENFORTUMAB VEDOTIN [Suspect]
     Active Substance: ENFORTUMAB VEDOTIN
     Dosage: 110 MG, CYCLIC (C2,D8)
     Route: 042
     Dates: start: 20230724
  6. ENFORTUMAB VEDOTIN [Suspect]
     Active Substance: ENFORTUMAB VEDOTIN
     Dosage: 110 MG, CYCLIC (C2,D15)
     Route: 042
     Dates: start: 20230731
  7. ENFORTUMAB VEDOTIN [Suspect]
     Active Substance: ENFORTUMAB VEDOTIN
     Dosage: 110 MG, CYCLIC (C3,D1)
     Route: 042
     Dates: start: 20230814
  8. ENFORTUMAB VEDOTIN [Suspect]
     Active Substance: ENFORTUMAB VEDOTIN
     Dosage: 110 MG, CYCLIC (C3,D8)
     Route: 042
     Dates: start: 20230821
  9. ENFORTUMAB VEDOTIN [Suspect]
     Active Substance: ENFORTUMAB VEDOTIN
     Dosage: 110 MG, CYCLIC (C3,D15)
     Route: 042
     Dates: start: 20230828
  10. ENFORTUMAB VEDOTIN [Suspect]
     Active Substance: ENFORTUMAB VEDOTIN
     Dosage: 110 MG, CYCLIC (C4,D1)
     Route: 042
     Dates: start: 20230911
  11. ENFORTUMAB VEDOTIN [Suspect]
     Active Substance: ENFORTUMAB VEDOTIN
     Dosage: 110 MG, CYCLIC (C4,D8)
     Route: 042
     Dates: start: 20230918
  12. ENFORTUMAB VEDOTIN [Suspect]
     Active Substance: ENFORTUMAB VEDOTIN
     Dosage: 110 MG, CYCLIC (C4,D15)
     Route: 042
     Dates: start: 20230925
  13. ENFORTUMAB VEDOTIN [Suspect]
     Active Substance: ENFORTUMAB VEDOTIN
     Dosage: 110 MG, CYCLIC (C5,D1)
     Route: 042
     Dates: start: 20231009
  14. ENFORTUMAB VEDOTIN [Suspect]
     Active Substance: ENFORTUMAB VEDOTIN
     Dosage: 110 MG, CYCLIC (C5,D8)
     Route: 042
     Dates: start: 20231016
  15. ENFORTUMAB VEDOTIN [Suspect]
     Active Substance: ENFORTUMAB VEDOTIN
     Dosage: 110 MG, CYCLIC (C5,D15)
     Route: 042
     Dates: start: 20231023
  16. ENFORTUMAB VEDOTIN [Suspect]
     Active Substance: ENFORTUMAB VEDOTIN
     Dosage: 86 MG, CYCLIC (C6,D1)
     Route: 042
     Dates: start: 20231120
  17. ENFORTUMAB VEDOTIN [Suspect]
     Active Substance: ENFORTUMAB VEDOTIN
     Dosage: 86 MG, CYCLIC (C6,D8)
     Route: 042
     Dates: start: 20231127
  18. ENFORTUMAB VEDOTIN [Suspect]
     Active Substance: ENFORTUMAB VEDOTIN
     Dosage: 86 MG, CYCLIC (C6,D15)
     Route: 042
     Dates: start: 20231204
  19. LEVOTHYROXINE [Concomitant]
     Active Substance: LEVOTHYROXINE
     Indication: Product used for unknown indication
     Dosage: UNK UNK, UNKNOWN FREQ.
     Route: 065

REACTIONS (1)
  - Acute generalised exanthematous pustulosis [Recovered/Resolved]

NARRATIVE: CASE EVENT DATE: 20231026
